FAERS Safety Report 7149286 (Version 2)
Quarter: 2013Q1

REPORT INFORMATION
  Report Type: Report from Study
  Country: US (occurrence: US)
  Receive Date: 20091015
  Receipt Date: 20130201
  Transmission Date: 20140127
  Serious: Yes (Other)
  Sender: FDA-Public Use
  Company Number: US-RB-021363-09

PATIENT
  Age: 22 None
  Sex: Female

DRUGS (1)
  1. SUBOXONE [Suspect]
     Indication: DRUG DEPENDENCE
     Route: 060
     Dates: start: 200901, end: 200903

REACTIONS (5)
  - Fungal infection [Recovered/Resolved]
  - Urinary tract infection [Recovered/Resolved]
  - Exposure during pregnancy [Recovered/Resolved]
  - Amniotic fluid volume decreased [Recovered/Resolved]
  - Premature delivery [Recovered/Resolved]
